FAERS Safety Report 10301475 (Version 2)
Quarter: 2014Q3

REPORT INFORMATION
  Report Type: Spontaneous
  Country: DK (occurrence: None)
  Receive Date: 20140708
  Receipt Date: 20140716
  Transmission Date: 20150326
  Serious: Yes (Hospitalization)
  Sender: FDA-Public Use
  Company Number: 2421257

PATIENT
  Age: 75 Year
  Sex: Female

DRUGS (2)
  1. CAPECITABINE [Suspect]
     Active Substance: CAPECITABINE
     Indication: COLON CANCER
     Dates: start: 201206
  2. OXALIPLATIN. [Suspect]
     Active Substance: OXALIPLATIN
     Indication: COLON CANCER
     Dates: start: 201206

REACTIONS (10)
  - Gastric ulcer [None]
  - Nausea [None]
  - Renal impairment [None]
  - Dehydration [None]
  - Pyrexia [None]
  - Diarrhoea [None]
  - Infection [None]
  - Malaise [None]
  - Depressed level of consciousness [None]
  - Vomiting [None]
